FAERS Safety Report 17416792 (Version 1)
Quarter: 2020Q1

REPORT INFORMATION
  Report Type: Spontaneous
  Country: BR (occurrence: BR)
  Receive Date: 20200214
  Receipt Date: 20200214
  Transmission Date: 20200409
  Serious: Yes (Hospitalization, Other)
  Sender: FDA-Public Use
  Company Number: BR-SA-2020SA033989

PATIENT
  Sex: Male

DRUGS (3)
  1. TAXOTERE [Suspect]
     Active Substance: DOCETAXEL
     Dosage: 120 UNK (80 MG STRENGTH)
     Route: 042
     Dates: start: 20200117
  2. TAXOTERE [Suspect]
     Active Substance: DOCETAXEL
     Indication: BREAST CANCER MALE
     Dosage: 120 UNK (20 MG/1 ML STRENGTH) INJECTION ONE VIAL
     Route: 042
     Dates: start: 20200117
  3. DEXAMETHASONE. [Concomitant]
     Active Substance: DEXAMETHASONE
     Dosage: 10 MG
     Route: 065
     Dates: start: 201910

REACTIONS (2)
  - Mucosal inflammation [Unknown]
  - Neutropenia [Unknown]

NARRATIVE: CASE EVENT DATE: 20200123
